FAERS Safety Report 5585437-X (Version None)
Quarter: 2008Q1

REPORT INFORMATION
  Report Type: 
  Country: None (occurrence: None)
  Receive Date: 20080109
  Receipt Date: 20080102
  Transmission Date: 20080703
  Serious: Yes (Hospitalization)
  Sender: FDA-Public Use
  Company Number: GB-AVENTIS-200721203GDDC

PATIENT
  Age: 61 Year
  Sex: Female
  Weight: 77 kg

DRUGS (10)
  1. DOCETAXEL [Suspect]
     Dosage: DOSE: UNK
     Route: 042
     Dates: start: 20071105, end: 20071105
  2. CODE UNBROKEN [Suspect]
     Dosage: DOSE: UNK DOSE (DAILY FOR 14 DAYS THEN OFF FOR 7 DAYS)
     Route: 048
     Dates: start: 20071105, end: 20071113
  3. FENTANYL [Concomitant]
     Dates: start: 20071001
  4. ACETAMINOPHEN [Concomitant]
     Dates: start: 20071001
  5. ENALAPRIL [Concomitant]
     Indication: HYPERTENSION
     Dates: start: 19970101
  6. FUROSEMIDE [Concomitant]
     Indication: HYPERTENSION
     Dates: start: 19970101
  7. DICLOFENAC SODIUM [Concomitant]
     Dates: start: 20071101
  8. OMEPRAZOLE [Concomitant]
     Dates: start: 20071101, end: 20071115
  9. ACYCLOVIR [Concomitant]
     Dates: start: 20071112, end: 20071126
  10. ACYCLOVIR [Concomitant]
     Indication: RASH
     Dates: start: 20071112, end: 20071126

REACTIONS (5)
  - ATRIAL FIBRILLATION [None]
  - HYPERGLYCAEMIA [None]
  - ORAL CANDIDIASIS [None]
  - URINARY TRACT INFECTION [None]
  - VAGINAL CANDIDIASIS [None]
